FAERS Safety Report 5514190-0 (Version None)
Quarter: 2007Q4

REPORT INFORMATION
  Report Type: 
  Country: None (occurrence: None)
  Receive Date: 20071113
  Receipt Date: 20071029
  Transmission Date: 20080405
  Serious: Yes (Death)
  Sender: FDA-Public Use
  Company Number: FR-GENENTECH-250964

PATIENT
  Sex: Male

DRUGS (2)
  1. HERCEPTIN [Suspect]
     Indication: BLADDER NEOPLASM
     Dosage: 400 MG, UNK
     Route: 042
     Dates: start: 20070619
  2. TAXOL [Concomitant]
     Indication: DRUG USE FOR UNKNOWN INDICATION

REACTIONS (1)
  - INTESTINAL OBSTRUCTION [None]
